FAERS Safety Report 6456962-4 (Version None)
Quarter: 2009Q4

REPORT INFORMATION
  Report Type: 
  Country: None (occurrence: None)
  Receive Date: 20091125
  Receipt Date: 20091118
  Transmission Date: 20100525
  Serious: Yes (Hospitalization, Other)
  Sender: FDA-Public Use
  Company Number: FR-JNJFOC-20091000347

PATIENT
  Age: 62 Year
  Sex: Male

DRUGS (8)
  1. REMICADE [Suspect]
     Dosage: 2ND INFUSION
     Route: 042
  2. REMICADE [Suspect]
     Indication: PSORIASIS
     Dosage: 1ST INFUSION
     Route: 042
  3. LANSOPRAZOLE [Concomitant]
     Indication: GASTROOESOPHAGEAL REFLUX DISEASE
     Route: 048
  4. IMOVANE [Concomitant]
     Indication: SLEEP DISORDER
     Route: 048
  5. XANAX [Concomitant]
     Indication: ANXIETY
     Route: 048
  6. DOLIPRANE [Concomitant]
  7. LEXOMIL [Concomitant]
     Indication: ANXIETY
     Route: 048
  8. ATACAND [Concomitant]
     Indication: HYPERTENSION
     Route: 048

REACTIONS (13)
  - AREFLEXIA [None]
  - ASPARTATE AMINOTRANSFERASE INCREASED [None]
  - BLOOD ALKALINE PHOSPHATASE INCREASED [None]
  - BRACHIAL PLEXOPATHY [None]
  - CHILLS [None]
  - DYSPNOEA [None]
  - GAMMA-GLUTAMYLTRANSFERASE INCREASED [None]
  - INFUSION RELATED REACTION [None]
  - MOTOR DYSFUNCTION [None]
  - PAIN IN EXTREMITY [None]
  - PYREXIA [None]
  - ROTATOR CUFF SYNDROME [None]
  - TENDON DISORDER [None]
